FAERS Safety Report 19836521 (Version 3)
Quarter: 2024Q1

REPORT INFORMATION
  Report Type: Report from Study
  Country: US (occurrence: US)
  Receive Date: 20210916
  Receipt Date: 20240226
  Transmission Date: 20240410
  Serious: Yes (Other)
  Sender: FDA-Public Use
  Company Number: US-SA-SAC20210915000006

PATIENT
  Age: 67 Year
  Sex: Male

DRUGS (2)
  1. DUPILUMAB [Suspect]
     Active Substance: DUPILUMAB
     Indication: Dermatitis atopic
     Dosage: 300 MG, QOW
     Route: 058
     Dates: start: 20200804
  2. DUPILUMAB [Suspect]
     Active Substance: DUPILUMAB
     Dosage: 300 MG, Q3W
     Route: 058
     Dates: end: 20240222

REACTIONS (7)
  - Glaucoma [Unknown]
  - Eyelid disorder [Unknown]
  - Dry eye [Unknown]
  - Eye disorder [Unknown]
  - Eye inflammation [Recovered/Resolved]
  - Off label use [Unknown]
  - Contact lens intolerance [Unknown]

NARRATIVE: CASE EVENT DATE: 20200801
